FAERS Safety Report 9496788 (Version 10)
Quarter: 2015Q3

REPORT INFORMATION
  Report Type: Report from Study
  Country: US (occurrence: US)
  Receive Date: 20130904
  Receipt Date: 20150828
  Transmission Date: 20151125
  Serious: Yes (Other)
  Sender: FDA-Public Use
  Company Number: US-SANOFI-AVENTIS-2013SA077839

PATIENT
  Age: 67 Year
  Sex: Female
  Weight: 49.44 kg

DRUGS (14)
  1. AUBAGIO [Suspect]
     Active Substance: TERIFLUNOMIDE
     Indication: MULTIPLE SCLEROSIS
     Route: 048
     Dates: start: 20130326, end: 20130724
  2. NASONEX [Concomitant]
     Active Substance: MOMETASONE FUROATE
  3. ACYCLOVIR. [Concomitant]
     Active Substance: ACYCLOVIR
  4. GABAPENTIN. [Concomitant]
     Active Substance: GABAPENTIN
  5. BENEFIBER [Concomitant]
     Active Substance: STARCH, WHEAT
  6. TYLENOL [Concomitant]
     Active Substance: ACETAMINOPHEN
  7. AZATHIOPRINE. [Concomitant]
     Active Substance: AZATHIOPRINE
  8. VITAMIN D [Concomitant]
     Active Substance: CHOLECALCIFEROL
  9. HYOSCYAMINE. [Concomitant]
     Active Substance: HYOSCYAMINE
     Indication: BLADDER SPASM
  10. PREMARIN [Concomitant]
     Active Substance: ESTROGENS, CONJUGATED
  11. VALTREX [Concomitant]
     Active Substance: VALACYCLOVIR HYDROCHLORIDE
  12. LEVOTHYROXINE. [Concomitant]
     Active Substance: LEVOTHYROXINE
  13. IMURAN [Concomitant]
     Active Substance: AZATHIOPRINE
  14. AUBAGIO [Suspect]
     Active Substance: TERIFLUNOMIDE
     Indication: MULTIPLE SCLEROSIS
     Route: 065
     Dates: start: 20130802

REACTIONS (15)
  - Pruritus [Unknown]
  - Skin burning sensation [Unknown]
  - Alopecia [Recovering/Resolving]
  - Allergy to chemicals [Unknown]
  - Headache [Not Recovered/Not Resolved]
  - Pneumonia [Recovered/Resolved]
  - Vision blurred [Not Recovered/Not Resolved]
  - Erythema [Unknown]
  - Therapeutic response unexpected [Unknown]
  - Itching scar [Unknown]
  - Skin papilloma [Not Recovered/Not Resolved]
  - Skin cancer [Unknown]
  - Lung infection [Recovered/Resolved]
  - Glassy eyes [Recovered/Resolved]
  - Bradyphrenia [Unknown]
